FAERS Safety Report 13465469 (Version 1)
Quarter: 2017Q2

REPORT INFORMATION
  Report Type: Spontaneous
  Country: US (occurrence: US)
  Receive Date: 20170420
  Receipt Date: 20170420
  Transmission Date: 20170830
  Serious: No
  Sender: FDA-Public Use
  Company Number: None

PATIENT
  Age: 61 Year
  Sex: Female

DRUGS (1)
  1. IMATINIB MES [Suspect]
     Active Substance: IMATINIB MESYLATE
     Indication: PAIN

REACTIONS (2)
  - Arthralgia [None]
  - Fluid retention [None]

NARRATIVE: CASE EVENT DATE: 20170420
